FAERS Safety Report 10947963 (Version 2)
Quarter: 2015Q2

REPORT INFORMATION
  Report Type: Spontaneous
  Country: US (occurrence: None)
  Receive Date: 20150320
  Receipt Date: 20150402
  Transmission Date: 20150821
  Serious: Yes (Death)
  Sender: FDA-Public Use
  Company Number: 150079

PATIENT
  Age: 63 Year
  Sex: Male
  Weight: 86.18 kg

DRUGS (1)
  1. SUPREP BOWEL PREP [Suspect]
     Active Substance: MAGNESIUM SULFATE\POTASSIUM SULFATE\SODIUM SULFATE
     Indication: COLONOSCOPY
     Dosage: 2 X 6 OZ. BOTTLE 1X PO
     Route: 048
     Dates: start: 20141201

REACTIONS (5)
  - Dyskinesia [None]
  - Chills [None]
  - Refusal of treatment by patient [None]
  - Myalgia [None]
  - General physical health deterioration [None]

NARRATIVE: CASE EVENT DATE: 20141201
